FAERS Safety Report 5501456-3 (Version None)
Quarter: 2007Q4

REPORT INFORMATION
  Report Type: 
  Country: None (occurrence: None)
  Receive Date: 20071018
  Receipt Date: 20070310
  Transmission Date: 20080405
  Serious: Yes (Other)
  Sender: FDA-Public Use
  Company Number: 2007018684

PATIENT
  Age: 60 Year
  Sex: Female
  Weight: 87.1 kg

DRUGS (5)
  1. NEURONTIN [Suspect]
     Indication: NEURALGIA
     Dosage: 900 MG (300 MG, 3 IN 1 D)
     Dates: start: 20050101, end: 20070305
  2. METFORMIN HCL [Concomitant]
  3. FIBRATES (FIBRATES) [Concomitant]
  4. ZETIA [Concomitant]
  5. LEVOTHYROXINE SODIUM [Concomitant]

REACTIONS (1)
  - DEAFNESS [None]
